FAERS Safety Report 19267135 (Version 1)
Quarter: 2021Q2

REPORT INFORMATION
  Report Type: Spontaneous
  Country: US (occurrence: US)
  Receive Date: 20210517
  Receipt Date: 20210517
  Transmission Date: 20210717
  Serious: No
  Sender: FDA-Public Use
  Company Number: US-PFIZER INC-2021241083

PATIENT
  Age: 73 Year
  Sex: Female

DRUGS (4)
  1. IBRANCE [Suspect]
     Active Substance: PALBOCICLIB
     Indication: BREAST CANCER FEMALE
     Dosage: 75 MG
     Dates: start: 201908
  2. IBRANCE [Suspect]
     Active Substance: PALBOCICLIB
     Indication: CHEMOTHERAPY
  3. IBRANCE [Suspect]
     Active Substance: PALBOCICLIB
     Indication: VOMITING
  4. IBRANCE [Suspect]
     Active Substance: PALBOCICLIB
     Indication: NAUSEA

REACTIONS (1)
  - Tumour marker increased [Unknown]
